FAERS Safety Report 17548993 (Version 1)
Quarter: 2020Q1

REPORT INFORMATION
  Report Type: Spontaneous
  Country: GB (occurrence: GB)
  Receive Date: 20200317
  Receipt Date: 20200317
  Transmission Date: 20200409
  Serious: Yes (Other)
  Sender: FDA-Public Use
  Company Number: GB-TEVA-2020-GB-1201392

PATIENT
  Age: 46 Year
  Sex: Female

DRUGS (1)
  1. FENTANYL. [Suspect]
     Active Substance: FENTANYL
     Route: 065
     Dates: start: 20190408

REACTIONS (3)
  - Overdose [Unknown]
  - Slow response to stimuli [Unknown]
  - Apnoea [Unknown]

NARRATIVE: CASE EVENT DATE: 20190408
